FAERS Safety Report 7655177-1 (Version None)
Quarter: 2011Q3

REPORT INFORMATION
  Report Type: 
  Country: None (occurrence: None)
  Receive Date: 20110804
  Receipt Date: 20110801
  Transmission Date: 20111222
  Serious: No
  Sender: FDA-Public Use
  Company Number: US-PFIZER INC-2011175758

PATIENT
  Sex: Female
  Weight: 122 kg

DRUGS (4)
  1. LYRICA [Suspect]
     Indication: FIBROMYALGIA
     Dosage: 75 MG, 2X/DAY
     Route: 048
     Dates: start: 20110725
  2. BUSPAR [Concomitant]
     Dosage: 7.5 MG, 2X/DAY
  3. METFORMIN [Concomitant]
     Indication: DIABETES MELLITUS
     Dosage: 500 MG, 2X/DAY
  4. PROZAC [Concomitant]
     Dosage: 40 MG, DAILY

REACTIONS (6)
  - DRUG INEFFECTIVE [None]
  - DYSPHONIA [None]
  - ARTHRALGIA [None]
  - IRRITABILITY [None]
  - MYALGIA [None]
  - EUPHORIC MOOD [None]
